FAERS Safety Report 7817046-3 (Version None)
Quarter: 2011Q4

REPORT INFORMATION
  Report Type: 
  Country: None (occurrence: None)
  Receive Date: 20111014
  Receipt Date: 20111004
  Transmission Date: 20120403
  Serious: Yes (Other)
  Sender: FDA-Public Use
  Company Number: 1068441

PATIENT
  Age: 49 Year
  Sex: Male

DRUGS (2)
  1. RED BLOOD CELLS [Concomitant]
  2. PIPERACILLIN AND TAZOBACTAM [Suspect]
     Indication: SEPTIC SHOCK

REACTIONS (2)
  - INTRAVASCULAR HAEMOLYSIS [None]
  - TRANSFUSION REACTION [None]
